FAERS Safety Report 6982153-4 (Version None)
Quarter: 2010Q3

REPORT INFORMATION
  Report Type: 
  Country: None (occurrence: None)
  Receive Date: 20100914
  Receipt Date: 20091207
  Transmission Date: 20110219
  Serious: No
  Sender: FDA-Public Use
  Company Number: US-PFIZER INC-2009307277

PATIENT
  Sex: Female
  Weight: 59.9 kg

DRUGS (12)
  1. LYRICA [Suspect]
     Indication: CONVULSION
     Dosage: 50 MG, 3X/DAY
     Route: 048
     Dates: start: 20070101
  2. CARBAMAZEPINE [Concomitant]
  3. PHENOBARBITAL [Concomitant]
  4. METOPROLOL [Concomitant]
     Dosage: ONCE A DAY
  5. FOSAMAX [Concomitant]
  6. OXYCODONE [Concomitant]
  7. FAMOTIDINE [Concomitant]
  8. FUROSEMIDE [Concomitant]
  9. LISINOPRIL [Concomitant]
  10. SIMVASTATIN [Concomitant]
  11. WARFARIN SODIUM [Concomitant]
  12. VESICARE [Concomitant]

REACTIONS (2)
  - OEDEMA PERIPHERAL [None]
  - SOMNOLENCE [None]
